FAERS Safety Report 7450630-8 (Version None)
Quarter: 2011Q2

REPORT INFORMATION
  Report Type: 
  Country: None (occurrence: None)
  Receive Date: 20110502
  Receipt Date: 20110427
  Transmission Date: 20111010
  Serious: Yes (Death)
  Sender: FDA-Public Use
  Company Number: FR-SANOFI-AVENTIS-2011SA025969

PATIENT
  Age: 61 Year
  Sex: Female

DRUGS (11)
  1. TAXOTERE [Suspect]
     Indication: BREAST CANCER
     Route: 042
     Dates: start: 20100914, end: 20101026
  2. METHYLPREDNISOLONE [Suspect]
     Indication: PREMEDICATION
     Route: 048
     Dates: start: 20100716, end: 20100824
  3. ZOPHREN [Suspect]
     Indication: PREMEDICATION
     Route: 042
     Dates: start: 20100914, end: 20101026
  4. PRIMPERAN TAB [Suspect]
     Dosage: 5 MG, ONE TO THREE TIMES PER DAY
     Route: 048
     Dates: start: 20101012
  5. ACETAMINOPHEN AND TRAMADOL HCL [Suspect]
     Dosage: 1 TO 2 TABLETS DAILY
     Route: 048
     Dates: start: 20101012
  6. HEXAQUINE [Suspect]
     Dosage: 1 TO 2 TABLETS DAILY
     Route: 048
     Dates: start: 20101012
  7. FLUOROURACIL [Suspect]
     Route: 042
     Dates: start: 20100716, end: 20100824
  8. FERROUS SULFATE TAB [Suspect]
     Route: 048
     Dates: start: 20101012
  9. ENDOXAN [Suspect]
     Route: 042
     Dates: start: 20100716, end: 20100824
  10. SOLU-MEDROL [Concomitant]
     Route: 042
     Dates: start: 20100601
  11. EPIRUBICINE [Suspect]
     Route: 042
     Dates: start: 20100716, end: 20100824

REACTIONS (9)
  - DYSPNOEA [None]
  - ALVEOLITIS ALLERGIC [None]
  - CYTOLYTIC HEPATITIS [None]
  - CHOLESTASIS [None]
  - SYSTEMIC INFLAMMATORY RESPONSE SYNDROME [None]
  - ACUTE RESPIRATORY FAILURE [None]
  - INFECTION [None]
  - PERICARDIAL EFFUSION [None]
  - ACUTE RESPIRATORY DISTRESS SYNDROME [None]
